FAERS Safety Report 4500642-9 (Version None)
Quarter: 2004Q4

REPORT INFORMATION
  Report Type: 
  Country: None (occurrence: None)
  Receive Date: 20041109
  Receipt Date: 20041028
  Transmission Date: 20050328
  Serious: Yes (Death, Hospitalization)
  Sender: FDA-Public Use
  Company Number: 2004084341

PATIENT
  Age: 73 Year
  Sex: Female
  Weight: 90.7194 kg

DRUGS (3)
  1. ROGAINE [Suspect]
     Indication: ALOPECIA AREATA
     Dosage: 1 ML TWICE DAILY, TOPICAL
     Route: 061
     Dates: start: 20000101
  2. ROFECOXIB [Concomitant]
  3. DRUG, UNSPECIFIED (DRUG, UNSPECIFIED) [Concomitant]

REACTIONS (7)
  - ANEURYSM [None]
  - BRAIN OEDEMA [None]
  - COMA [None]
  - DIZZINESS [None]
  - HEADACHE [None]
  - PAIN OF SKIN [None]
  - VISION BLURRED [None]
